FAERS Safety Report 6778989-5 (Version None)
Quarter: 2010Q2

REPORT INFORMATION
  Report Type: 
  Country: None (occurrence: None)
  Receive Date: 20100618
  Receipt Date: 20100609
  Transmission Date: 20101027
  Serious: Yes (Hospitalization)
  Sender: FDA-Public Use
  Company Number: FR-ASTRAZENECA-2010SE27020

PATIENT
  Age: 59 Year
  Sex: Female

DRUGS (4)
  1. MOPRAL [Suspect]
     Indication: GASTRODUODENAL ULCER
     Route: 048
     Dates: end: 20100424
  2. ERYTHROMYCINE [Suspect]
     Route: 048
     Dates: start: 20100401, end: 20100424
  3. DI ANTALVIC [Suspect]
     Route: 048
     Dates: start: 20100419, end: 20100424
  4. DAFALGAN [Suspect]
     Indication: OSTEOARTHRITIS
     Route: 048
     Dates: end: 20100424

REACTIONS (1)
  - CYTOLYTIC HEPATITIS [None]
